FAERS Safety Report 17263292 (Version 1)
Quarter: 2020Q1

REPORT INFORMATION
  Report Type: Spontaneous
  Country: US (occurrence: US)
  Receive Date: 20200113
  Receipt Date: 20200113
  Transmission Date: 20200409
  Serious: No
  Sender: FDA-Public Use
  Company Number: US-SIGMAPHARM LABORATORIES, LLC-2019SIG00009

PATIENT
  Age: 64 Year
  Sex: Female
  Weight: 52.15 kg

DRUGS (4)
  1. LIOTHYRONINE SODIUM. [Suspect]
     Active Substance: LIOTHYRONINE SODIUM
     Dosage: 5 MCG, 1X/DAY
     Dates: start: 20181115
  2. NATURE-THROID [Concomitant]
     Active Substance: THYROID, PORCINE
     Dosage: 48.75 MG (0.75 GRAINS), 1X/DAY IN THE EVENING
  3. NATURE-THROID [Concomitant]
     Active Substance: THYROID, PORCINE
     Dosage: 97.5 MG (1.5 GRAINS), 1X/DAY IN THE MORNING
  4. LIOTHYRONINE SODIUM. [Suspect]
     Active Substance: LIOTHYRONINE SODIUM
     Dosage: 2.5 MCG, 1X/DAY
     Dates: start: 20190118

REACTIONS (1)
  - Headache [Recovering/Resolving]

NARRATIVE: CASE EVENT DATE: 20181116
